FAERS Safety Report 7731316-9 (Version None)
Quarter: 2011Q3

REPORT INFORMATION
  Report Type: 
  Country: None (occurrence: None)
  Receive Date: 20110906
  Receipt Date: 20110823
  Transmission Date: 20111222
  Serious: Yes (Other)
  Sender: FDA-Public Use
  Company Number: US-BAYER-2011-077257

PATIENT
  Sex: Female

DRUGS (1)
  1. ASPIRIN [Suspect]
     Indication: HEADACHE
     Dosage: UNK, ONCE
     Route: 048

REACTIONS (5)
  - OEDEMA MOUTH [None]
  - HYPERSENSITIVITY [None]
  - EYE SWELLING [None]
  - SWELLING FACE [None]
  - THROAT TIGHTNESS [None]
